FAERS Safety Report 21777960 (Version 2)
Quarter: 2023Q1

REPORT INFORMATION
  Report Type: Spontaneous
  Country: US (occurrence: US)
  Receive Date: 20221226
  Receipt Date: 20230110
  Transmission Date: 20230418
  Serious: Yes (Hospitalization, Other)
  Sender: FDA-Public Use
  Company Number: US-BRISTOL-MYERS SQUIBB COMPANY-2022-157877

PATIENT
  Age: 76 Year
  Sex: Female
  Weight: 89.81 kg

DRUGS (1)
  1. REVLIMID [Suspect]
     Active Substance: LENALIDOMIDE
     Indication: Plasma cell myeloma
     Dosage: 3W, 1W OFF, 21D OF 28D CYCLE
     Route: 048
     Dates: start: 20221124

REACTIONS (9)
  - Constipation [Unknown]
  - Renal disorder [Unknown]
  - Abdominal pain [Unknown]
  - Urinary retention [Unknown]
  - Peripheral swelling [Unknown]
  - Arthritis [Unknown]
  - Spinal osteoarthritis [Unknown]
  - Ligament calcification [Unknown]
  - Vascular calcification [Unknown]
